FAERS Safety Report 4264774-5 (Version None)
Quarter: 2004Q1

REPORT INFORMATION
  Report Type: 
  Country: None (occurrence: None)
  Receive Date: 20040102
  Receipt Date: 20031224
  Transmission Date: 20041129
  Serious: Yes (Disabling)
  Sender: FDA-Public Use
  Company Number: GBWYE485330DEC03

PATIENT
  Age: 39 Year
  Sex: Female

DRUGS (7)
  1. EFFEXOR [Suspect]
     Indication: DEPRESSION
     Dosage: 75MG ORAL
     Route: 048
     Dates: start: 20030715, end: 20031118
  2. EFFEXOR [Suspect]
     Indication: DEPRESSION
     Dosage: 75MG ORAL
     Route: 048
     Dates: start: 20031202
  3. SINGULAIR [Concomitant]
  4. SALBUTAMOL (SALBUTAMOL) [Concomitant]
  5. SALMETEROL (SALMETEROL) [Concomitant]
  6. AMITRIPTYLINE HCL [Concomitant]
  7. FLUTICASONE PROPIONATE [Concomitant]

REACTIONS (4)
  - CONVULSIVE THRESHOLD LOWERED [None]
  - EPILEPSY [None]
  - GRAND MAL CONVULSION [None]
  - HEAD INJURY [None]
